FAERS Safety Report 4363751-3 (Version None)
Quarter: 2004Q2

REPORT INFORMATION
  Report Type: 
  Country: None (occurrence: None)
  Receive Date: 20040517
  Receipt Date: 20040220
  Transmission Date: 20050107
  Serious: No
  Sender: FDA-Public Use
  Company Number: S04-USA-00972-01

PATIENT
  Age: 82 Year
  Sex: Male

DRUGS (9)
  1. NAMENDA [Suspect]
     Indication: DEMENTIA ALZHEIMER'S TYPE
     Dosage: 10 MG QD PO
     Route: 048
     Dates: start: 20040130, end: 20040205
  2. NAMENDA [Suspect]
     Indication: DEMENTIA ALZHEIMER'S TYPE
     Dosage: 15 MG QD PO
     Route: 048
     Dates: start: 20040206, end: 20040212
  3. NAMENDA [Suspect]
     Indication: DEMENTIA ALZHEIMER'S TYPE
     Dosage: 10 MG BID PO
     Route: 048
     Dates: start: 20040213
  4. NAMENDA [Suspect]
     Indication: DEMENTIA ALZHEIMER'S TYPE
     Dosage: 5 MG QD PO
     Route: 048
     Dates: start: 20040123, end: 20040129
  5. FLOMAX [Concomitant]
  6. DIFLUCAN (FLUCOMAZOLE) [Concomitant]
  7. MICARDIS [Concomitant]
  8. MULTIVITAMIN [Concomitant]
  9. REMINYL [Concomitant]

REACTIONS (3)
  - CONSTIPATION [None]
  - FALL [None]
  - RASH [None]
